FAERS Safety Report 4793610-3 (Version None)
Quarter: 2005Q4

REPORT INFORMATION
  Report Type: 
  Country: None (occurrence: None)
  Receive Date: 20051011
  Receipt Date: 20050928
  Transmission Date: 20060501
  Serious: Yes (Death)
  Sender: FDA-Public Use
  Company Number: MX-BOEHRINGER INGELHEIM PHARMACEUTICALS, INC.-2005-DE-03994GD

PATIENT
  Age: 45 Year
  Sex: Female

DRUGS (4)
  1. NEVIRAPINE [Suspect]
     Indication: HIV INFECTION
     Dates: start: 19990901, end: 20000301
  2. HYDROXYUREA [Suspect]
     Indication: HIV INFECTION
     Dates: start: 19990901, end: 20000301
  3. D4T [Suspect]
     Indication: HIV INFECTION
     Dates: start: 19990901, end: 20000301
  4. LAMIVUDINE [Suspect]
     Indication: HIV INFECTION
     Dates: start: 19990901, end: 20000301

REACTIONS (20)
  - ABDOMINAL PAIN [None]
  - ASTHENIA [None]
  - BLOOD CREATININE INCREASED [None]
  - BLOOD POTASSIUM INCREASED [None]
  - BLOOD TRIGLYCERIDES INCREASED [None]
  - CHROMATURIA [None]
  - DEHYDRATION [None]
  - HEPATIC STEATOSIS [None]
  - HYPERHIDROSIS [None]
  - HYPOGLYCAEMIA [None]
  - HYPOTENSION [None]
  - JAUNDICE [None]
  - METABOLIC ACIDOSIS [None]
  - MULTI-ORGAN FAILURE [None]
  - MUSCULAR WEAKNESS [None]
  - MYALGIA [None]
  - NAUSEA [None]
  - NEUROPATHY PERIPHERAL [None]
  - OEDEMATOUS PANCREATITIS [None]
  - VOMITING [None]
